FAERS Safety Report 10028745 (Version 1)
Quarter: 2014Q1

REPORT INFORMATION
  Report Type: Spontaneous
  Country: US (occurrence: US)
  Receive Date: 20140321
  Receipt Date: 20140321
  Transmission Date: 20141002
  Serious: Yes (Death, Hospitalization)
  Sender: FDA-Public Use
  Company Number: US-BRACCO-010662

PATIENT
  Age: 77 Year
  Sex: Male

DRUGS (1)
  1. BARIUM [Suspect]
     Indication: BARIUM ENEMA
     Route: 054

REACTIONS (7)
  - Multi-organ failure [Fatal]
  - Extravasation [Unknown]
  - Shock [Unknown]
  - Pneumoperitoneum [Unknown]
  - Abdominal pain [Unknown]
  - Abdominal tenderness [Unknown]
  - Haematochezia [Unknown]
